FAERS Safety Report 7409388-0 (Version None)
Quarter: 2011Q2

REPORT INFORMATION
  Report Type: 
  Country: None (occurrence: None)
  Receive Date: 20110412
  Receipt Date: 20101223
  Transmission Date: 20111010
  Serious: Yes (Other)
  Sender: FDA-Public Use
  Company Number: US-BAYER-2010-003209

PATIENT
  Age: 21 Year
  Sex: Female
  Weight: 81.633 kg

DRUGS (2)
  1. TRINESSA [Concomitant]
  2. YAZ [Suspect]
     Indication: CONTRACEPTION
     Dosage: UNK
     Dates: start: 20071201, end: 20080401

REACTIONS (7)
  - EMOTIONAL DISTRESS [None]
  - FEAR OF DEATH [None]
  - CHOLELITHIASIS [None]
  - INJURY [None]
  - DEPRESSION [None]
  - CHOLECYSTITIS [None]
  - NERVOUSNESS [None]
